FAERS Safety Report 12234455 (Version 1)
Quarter: 2016Q2

REPORT INFORMATION
  Report Type: Spontaneous
  Country: US (occurrence: None)
  Receive Date: 20160401
  Receipt Date: 20160401
  Transmission Date: 20160815
  Serious: Yes (Hospitalization)
  Sender: FDA-Public Use
  Company Number: None

PATIENT
  Age: 68 Year
  Sex: Female
  Weight: 91.63 kg

DRUGS (7)
  1. INSULIN PUMP [Concomitant]
     Active Substance: INSULIN NOS
  2. OMEPRAZOLE. [Concomitant]
     Active Substance: OMEPRAZOLE
  3. COMPAZINE [Concomitant]
     Active Substance: PROCHLORPERAZINE MALEATE
  4. LISINOPRIL. [Concomitant]
     Active Substance: LISINOPRIL
  5. CARBOPLATIN. [Suspect]
     Active Substance: CARBOPLATIN
     Indication: MALIGNANT PERITONEAL NEOPLASM
     Dosage: 425 MG Q28 DAYS IV
     Route: 042
     Dates: start: 20160210, end: 20160309
  6. EVEROLIMUS [Suspect]
     Active Substance: EVEROLIMUS
     Indication: MALIGNANT PERITONEAL NEOPLASM
     Dosage: 5 MG DAILY FOR 28 DAYS PO
     Route: 048
     Dates: start: 20160210, end: 20160226
  7. LEVOTHYROXINE. [Concomitant]
     Active Substance: LEVOTHYROXINE

REACTIONS (11)
  - Rash [None]
  - Diarrhoea [None]
  - Vomiting [None]
  - Haematemesis [None]
  - Oesophagitis ulcerative [None]
  - Hiatus hernia [None]
  - Sinus tachycardia [None]
  - Haemoglobin decreased [None]
  - Pruritus [None]
  - Blood glucose increased [None]
  - Nausea [None]

NARRATIVE: CASE EVENT DATE: 20160327
